FAERS Safety Report 5325445-7 (Version None)
Quarter: 2007Q2

REPORT INFORMATION
  Report Type: 
  Country: None (occurrence: None)
  Receive Date: 20070509
  Receipt Date: 20070425
  Transmission Date: 20071010
  Serious: Yes (Hospitalization)
  Sender: FDA-Public Use
  Company Number: 2007PV032849

PATIENT
  Sex: Male

DRUGS (1)
  1. SYMLIN [Suspect]
     Indication: DRUG USE FOR UNKNOWN INDICATION
     Dosage: QD; SC
     Route: 058

REACTIONS (3)
  - HEPATIC ENZYME INCREASED [None]
  - JAUNDICE [None]
  - TUMOUR MARKER INCREASED [None]
